FAERS Safety Report 8292449-4 (Version None)
Quarter: 2012Q2

REPORT INFORMATION
  Report Type: 
  Country: None (occurrence: None)
  Receive Date: 20120417
  Receipt Date: 20120409
  Transmission Date: 20120825
  Serious: Yes (Hospitalization, Other)
  Sender: FDA-Public Use
  Company Number: AR-ROCHE-1059364

PATIENT
  Sex: Female

DRUGS (2)
  1. XOLAIR [Suspect]
     Indication: ASTHMA
     Dates: start: 20110501, end: 20110901
  2. XOLAIR [Suspect]
     Dates: start: 20111115, end: 20120201

REACTIONS (2)
  - PNEUMONIA [None]
  - NASOPHARYNGITIS [None]
